FAERS Safety Report 15231300 (Version 6)
Quarter: 2025Q4

REPORT INFORMATION
  Report Type: Spontaneous
  Country: EU (occurrence: EU)
  Receive Date: 20180802
  Receipt Date: 20251030
  Transmission Date: 20260117
  Serious: Yes (Life-Threatening, Hospitalization, Other)
  Sender: MYLAN
  Company Number: None

PATIENT
  Age: 20 Year
  Sex: Male

DRUGS (9)
  1. PREGABALIN [Suspect]
     Active Substance: PREGABALIN
     Indication: Depression
     Dosage: 150 MILLIGRAM, QD
  2. PREGABALIN [Suspect]
     Active Substance: PREGABALIN
     Indication: Dyskinesia
     Dosage: UNK
  3. PREGABALIN [Suspect]
     Active Substance: PREGABALIN
     Indication: Partial seizures
     Dosage: 150 MILLIGRAM, QD
     Dates: start: 201310
  4. PREGABALIN [Suspect]
     Active Substance: PREGABALIN
     Indication: Focal dyscognitive seizures
  5. IBUPROFEN [Suspect]
     Active Substance: IBUPROFEN
     Indication: Product used for unknown indication
     Dosage: UNK
  6. ALCOHOL [Suspect]
     Active Substance: ALCOHOL
     Indication: Product used for unknown indication
     Dosage: UNK
  7. ASPIRIN [Suspect]
     Active Substance: ASPIRIN
     Indication: Product used for unknown indication
     Dosage: UNK
  8. TIAPRIDE [Concomitant]
     Active Substance: TIAPRIDE
     Indication: Dyskinesia
     Dosage: UNK
     Dates: start: 201307, end: 201310
  9. TIAPRIDE [Concomitant]
     Active Substance: TIAPRIDE
     Indication: Dyskinesia

REACTIONS (16)
  - Depressed mood [Recovered/Resolved]
  - Alcohol interaction [Recovered/Resolved]
  - Sleep disorder [Recovered/Resolved]
  - Anxiety [Recovered/Resolved]
  - Intentional overdose [Recovered/Resolved]
  - Major depression [Unknown]
  - Toxicity to various agents [Unknown]
  - Thinking abnormal [Unknown]
  - Feeling of despair [Recovering/Resolving]
  - Suicide attempt [Recovered/Resolved]
  - Depression [Recovered/Resolved]
  - Intentional product misuse [Recovered/Resolved]
  - Suicidal ideation [Recovered/Resolved]
  - Apathy [Recovered/Resolved]
  - Partial seizures [Recovering/Resolving]
  - Condition aggravated [Recovering/Resolving]

NARRATIVE: CASE EVENT DATE: 20131001
